FAERS Safety Report 7177349-5 (Version None)
Quarter: 2010Q4

REPORT INFORMATION
  Report Type: 
  Country: None (occurrence: None)
  Receive Date: 20101220
  Receipt Date: 20101206
  Transmission Date: 20110411
  Serious: Yes (Hospitalization)
  Sender: FDA-Public Use
  Company Number: PHHY2010FR83671

PATIENT
  Age: 79 Year
  Sex: Male

DRUGS (12)
  1. TAREG [Suspect]
     Route: 048
  2. LASIX [Interacting]
     Route: 048
  3. VISIPAQUE [Interacting]
     Dosage: 192 ML (SINGLE DOSE)
     Route: 013
     Dates: start: 20091229
  4. ISOPTIN [Concomitant]
  5. AMLOR [Concomitant]
     Route: 048
  6. PLAVIX [Concomitant]
     Route: 048
  7. TAHOR [Concomitant]
     Route: 048
  8. NEXIUM [Concomitant]
  9. DIFFU K [Concomitant]
     Route: 048
  10. TARDYFERON [Concomitant]
     Route: 048
  11. HUMALOG MIX [Concomitant]
  12. NEORECORMON [Concomitant]

REACTIONS (12)
  - ACUTE PULMONARY OEDEMA [None]
  - BLOOD CREATININE INCREASED [None]
  - BLOOD UREA INCREASED [None]
  - C-REACTIVE PROTEIN INCREASED [None]
  - CORONARY ARTERY DISEASE [None]
  - DRUG INTERACTION [None]
  - ENTEROCOCCUS TEST POSITIVE [None]
  - HAEMODIALYSIS [None]
  - INFLAMMATION [None]
  - RENAL FAILURE ACUTE [None]
  - RENAL TUBULAR NECROSIS [None]
  - WEIGHT DECREASED [None]
